FAERS Safety Report 4983463-2 (Version None)
Quarter: 2006Q2

REPORT INFORMATION
  Report Type: 
  Country: None (occurrence: None)
  Receive Date: 20060426
  Receipt Date: 20051121
  Transmission Date: 20061013
  Serious: Yes (Hospitalization)
  Sender: FDA-Public Use
  Company Number: US-MERCK-0511USA03627

PATIENT
  Age: 51 Year
  Sex: Female
  Weight: 64 kg

DRUGS (11)
  1. VIOXX [Suspect]
     Indication: OSTEOARTHRITIS
     Route: 048
     Dates: start: 20000101, end: 20000101
  2. VIOXX [Suspect]
     Route: 048
     Dates: start: 20000101, end: 20000101
  3. METOPROLOL [Concomitant]
     Route: 048
  4. PREMPRO [Concomitant]
     Route: 065
     Dates: start: 19990101, end: 20000101
  5. TYLENOL (CAPLET) [Concomitant]
     Route: 048
     Dates: start: 19990101
  6. ELAVIL [Concomitant]
     Route: 048
     Dates: start: 19970101
  7. HYDROCHLOROTHIAZIDE [Concomitant]
     Route: 048
  8. NORVASC [Concomitant]
     Route: 048
  9. TOPROL-XL [Concomitant]
     Route: 048
  10. CYCRIN [Concomitant]
     Route: 048
  11. PLAVIX [Concomitant]
     Route: 048

REACTIONS (23)
  - ABDOMINAL PAIN [None]
  - ANGINA PECTORIS [None]
  - ARTERIOSCLEROSIS [None]
  - ARTHRITIS [None]
  - BLOOD CHOLESTEROL INCREASED [None]
  - BLOOD TRIGLYCERIDES INCREASED [None]
  - BREAST MASS [None]
  - COLONIC PERFORATION POSTOPERATIVE [None]
  - COLONIC POLYP [None]
  - CORONARY ARTERY DISEASE [None]
  - COSTOCHONDRITIS [None]
  - DIABETES MELLITUS NON-INSULIN-DEPENDENT [None]
  - DYSPEPSIA [None]
  - EYE DISORDER [None]
  - GASTRIC DISORDER [None]
  - GASTRITIS [None]
  - GASTROOESOPHAGEAL REFLUX DISEASE [None]
  - HAEMATOCHEZIA [None]
  - HEADACHE [None]
  - HIATUS HERNIA [None]
  - INJURY [None]
  - NORMOCHROMIC NORMOCYTIC ANAEMIA [None]
  - TENDONITIS [None]
